FAERS Safety Report 15775767 (Version 1)
Quarter: 2018Q4

REPORT INFORMATION
  Report Type: Spontaneous
  Country: US (occurrence: US)
  Receive Date: 20181231
  Receipt Date: 20181231
  Transmission Date: 20190205
  Serious: Yes (Hospitalization, Other)
  Sender: FDA-Public Use
  Company Number: US-ROCHE-2237256

PATIENT
  Age: 41 Year
  Sex: Female
  Weight: 136.2 kg

DRUGS (2)
  1. VALIUM [Suspect]
     Active Substance: DIAZEPAM
     Indication: ANXIETY
     Dosage: 4 DAY SUPPLY
     Route: 065
     Dates: start: 201810
  2. VALIUM [Suspect]
     Active Substance: DIAZEPAM
     Indication: PAIN MANAGEMENT
     Dosage: 3 DAY SUPPLY
     Route: 065
     Dates: start: 201808

REACTIONS (4)
  - Pain [Unknown]
  - Sepsis [Unknown]
  - Hepatitis toxic [Unknown]
  - Osteonecrosis [Unknown]

NARRATIVE: CASE EVENT DATE: 201810
